FAERS Safety Report 9506379 (Version 1)
Quarter: 2013Q1

REPORT INFORMATION
  Report Type: Spontaneous
  Country: US (occurrence: None)
  Receive Date: 20130305
  Receipt Date: 20130305
  Transmission Date: 20140127
  Serious: Yes (Hospitalization, Other)
  Sender: FDA-Public Use
  Company Number: 163-21880-12051267

PATIENT
  Age: 84 Year
  Sex: Female

DRUGS (26)
  1. REVLIMID [Suspect]
     Indication: MANTLE CELL LYMPHOMA
     Dosage: X21 DAYS
     Route: 048
     Dates: start: 20120212, end: 20120420
  2. ALBUTEROL SULFATE [Concomitant]
  3. ALPRAZOLAM [Concomitant]
  4. ASPIRIN [Concomitant]
  5. BENEFIBER [Concomitant]
  6. CARDIZEM [Concomitant]
  7. CENTRUM SILVER [Concomitant]
  8. CITALOPRAM HYDROBROMIDE [Concomitant]
  9. COLACE [Concomitant]
  10. DULCOLAX [Concomitant]
  11. FISH OIL [Concomitant]
  12. FLUOXETINE HCL [Concomitant]
  13. ISOSORBIDE MONONITRATE [Concomitant]
  14. LEVOTHYROXINE SODIUM [Concomitant]
  15. LIPITOR [Concomitant]
  16. MILK OF MAGNESIA [Concomitant]
  17. MIRALAX [Concomitant]
  18. NICOTINE [Concomitant]
  19. PLAVIX [Concomitant]
  20. PROMETHAZINE VC/CODEINE [Concomitant]
  21. SPIRIVA HANDIHALER [Concomitant]
  22. SYMBICORT [Concomitant]
  23. TYLENOL [Concomitant]
  24. VITAMIN D [Concomitant]
  25. ZETIA [Concomitant]
  26. ALLOPURINOL [Concomitant]

REACTIONS (1)
  - Chronic obstructive pulmonary disease [None]
